FAERS Safety Report 6843690-6 (Version None)
Quarter: 2010Q3

REPORT INFORMATION
  Report Type: 
  Country: None (occurrence: None)
  Receive Date: 20100715
  Receipt Date: 20100708
  Transmission Date: 20110219
  Serious: Yes (Death)
  Sender: FDA-Public Use
  Company Number: JP-EISAI INC.-E2020-07037-SPO-JP

PATIENT
  Age: 84 Year
  Sex: Female

DRUGS (7)
  1. ARICEPT [Suspect]
     Indication: DEMENTIA ALZHEIMER'S TYPE
     Route: 048
  2. WARFARIN SODIUM [Suspect]
     Indication: PRODUCT USED FOR UNKNOWN INDICATION
     Route: 065
  3. RABEPRAZOLE SODIUM [Concomitant]
     Route: 048
  4. BUP-4 [Concomitant]
  5. OLMETEC [Concomitant]
     Route: 048
  6. PANTOSIN [Concomitant]
  7. MAGNESIUM OXIDE [Concomitant]

REACTIONS (1)
  - MELAENA [None]
